FAERS Safety Report 5895998-9 (Version None)
Quarter: 2008Q3

REPORT INFORMATION
  Report Type: 
  Country: None (occurrence: None)
  Receive Date: 20080924
  Receipt Date: 20070717
  Transmission Date: 20090109
  Serious: Yes (Hospitalization, Other)
  Sender: FDA-Public Use
  Company Number: US-ASTRAZENECA-2007UW03764

PATIENT
  Age: 15362 Day
  Sex: Female

DRUGS (11)
  1. SEROQUEL [Suspect]
     Indication: DEPRESSION
     Route: 048
     Dates: start: 20030101, end: 20060101
  2. ZOCOR [Concomitant]
  3. NITROGLYCERIN [Concomitant]
  4. CELEXA [Concomitant]
  5. PRILOSEC [Concomitant]
     Route: 048
  6. WELLBUTRIN SR [Concomitant]
  7. ALLEGRA [Concomitant]
  8. LEVOXYL [Concomitant]
  9. TRAZODONE HCL [Concomitant]
  10. PREMPRO [Concomitant]
  11. METOPROLOL TARTRATE [Concomitant]

REACTIONS (10)
  - ALCOHOL ABUSE [None]
  - ANXIETY [None]
  - ASCITES [None]
  - DEPRESSION SUICIDAL [None]
  - GASTROOESOPHAGEAL REFLUX DISEASE [None]
  - HYPERGLYCAEMIA [None]
  - PANCREATITIS [None]
  - SUICIDAL IDEATION [None]
  - TYPE 2 DIABETES MELLITUS [None]
  - URINARY TRACT INFECTION [None]
